FAERS Safety Report 10667404 (Version 1)
Quarter: 2014Q4

REPORT INFORMATION
  Report Type: Spontaneous
  Country: GB (occurrence: None)
  Receive Date: 20141219
  Receipt Date: 20141219
  Transmission Date: 20150529
  Serious: Yes (Hospitalization)
  Sender: FDA-Public Use
  Company Number: None

PATIENT
  Age: 16 Month
  Sex: Male
  Weight: 12 kg

DRUGS (1)
  1. LOSEC [Suspect]
     Active Substance: OMEPRAZOLE
     Indication: GASTROOESOPHAGEAL REFLUX DISEASE
     Dosage: 15MG/DAY, ONCE DAILY, TAKEN BY MOUTH
     Route: 048
     Dates: start: 20131009, end: 20141214

REACTIONS (3)
  - Seizure [None]
  - Middle insomnia [None]
  - Chills [None]

NARRATIVE: CASE EVENT DATE: 20141205
